FAERS Safety Report 11121855 (Version 1)
Quarter: 2015Q2

REPORT INFORMATION
  Report Type: Spontaneous
  Country: US (occurrence: US)
  Receive Date: 20150519
  Receipt Date: 20150519
  Transmission Date: 20150821
  Serious: No
  Sender: FDA-Public Use
  Company Number: US-BAUSCH-BL-2014-008050

PATIENT
  Sex: Male
  Weight: 62.65 kg

DRUGS (1)
  1. IPRATROPIUM BROMIDE NASAL SOLUTION 0.06% [Suspect]
     Active Substance: IPRATROPIUM BROMIDE
     Indication: RHINORRHOEA
     Dosage: 1 SPRAY, 3 TIMES DAILY, AS NEEDED
     Route: 045

REACTIONS (1)
  - Drug ineffective [Unknown]
